FAERS Safety Report 17009105 (Version 1)
Quarter: 2019Q4

REPORT INFORMATION
  Report Type: Spontaneous
  Country: IT (occurrence: IT)
  Receive Date: 20191108
  Receipt Date: 20191108
  Transmission Date: 20200122
  Serious: Yes (Other)
  Sender: FDA-Public Use
  Company Number: IT-US WORLDMEDS, LLC-E2B_00003142

PATIENT
  Age: 3 Year
  Sex: Female
  Weight: 0 kg

DRUGS (1)
  1. BOTULINUM TOXIN TYPE B [Suspect]
     Active Substance: RIMABOTULINUMTOXINB
     Indication: SALIVARY HYPERSECRETION
     Route: 027
     Dates: start: 20190912, end: 20190912

REACTIONS (4)
  - Hypotonia [Recovering/Resolving]
  - Dysphagia [Recovering/Resolving]
  - Regurgitation [Recovering/Resolving]
  - Cough [Recovering/Resolving]

NARRATIVE: CASE EVENT DATE: 20190918
